FAERS Safety Report 17151225 (Version 3)
Quarter: 2020Q1

REPORT INFORMATION
  Report Type: Spontaneous
  Country: US (occurrence: US)
  Receive Date: 20191213
  Receipt Date: 20200212
  Transmission Date: 20200409
  Serious: Yes (Disabling)
  Sender: FDA-Public Use
  Company Number: US-AMGEN-USASP2019205759

PATIENT
  Age: 66 Year
  Sex: Female
  Weight: 48.53 kg

DRUGS (1)
  1. PROLIA [Suspect]
     Active Substance: DENOSUMAB
     Indication: PRODUCT USED FOR UNKNOWN INDICATION
     Dosage: UNK
     Route: 065
     Dates: start: 20190702

REACTIONS (8)
  - Gingival recession [Unknown]
  - Diarrhoea [Recovered/Resolved]
  - Feeling abnormal [Unknown]
  - Nasopharyngitis [Recovered/Resolved]
  - Eczema [Unknown]
  - Musculoskeletal stiffness [Unknown]
  - Fatigue [Unknown]
  - Arthralgia [Recovering/Resolving]

NARRATIVE: CASE EVENT DATE: 201908
